FAERS Safety Report 5877161-0 (Version None)
Quarter: 2008Q3

REPORT INFORMATION
  Report Type: 
  Country: None (occurrence: None)
  Receive Date: 20080910
  Receipt Date: 20080903
  Transmission Date: 20090109
  Serious: Yes (Death)
  Sender: FDA-Public Use
  Company Number: IE-PFIZER INC-2007103993

PATIENT
  Sex: Male

DRUGS (1)
  1. GENOTROPIN [Suspect]
     Route: 058
     Dates: start: 19990601

REACTIONS (1)
  - COMPLETED SUICIDE [None]
